FAERS Safety Report 23213639 (Version 1)
Quarter: 2023Q4

REPORT INFORMATION
  Report Type: Spontaneous
  Country: RE (occurrence: RE)
  Receive Date: 20231121
  Receipt Date: 20231121
  Transmission Date: 20240109
  Serious: Yes (Hospitalization, Other)
  Sender: FDA-Public Use
  Company Number: RE-SA-SAC20231113001102

PATIENT
  Age: 56 Year
  Sex: Female

DRUGS (1)
  1. PRALUENT [Suspect]
     Active Substance: ALIROCUMAB
     Indication: Type IIa hyperlipidaemia
     Dosage: UNK
     Route: 058
     Dates: end: 20230425

REACTIONS (1)
  - Hepatic cytolysis [Recovered/Resolved]
